FAERS Safety Report 12945977 (Version 8)
Quarter: 2017Q3

REPORT INFORMATION
  Report Type: Spontaneous
  Country: US (occurrence: US)
  Receive Date: 20161115
  Receipt Date: 20170712
  Transmission Date: 20171127
  Serious: Yes (Death, Hospitalization, Other)
  Sender: FDA-Public Use
  Company Number: US-ACTELION-A-US2016-145270

PATIENT
  Age: 6 Year
  Sex: Female
  Weight: 33.56 kg

DRUGS (19)
  1. ADCIRCA [Concomitant]
     Active Substance: TADALAFIL
     Dosage: 7.5 MG, QD
  2. LASIX [Concomitant]
     Active Substance: FUROSEMIDE
     Dosage: 10 MG, BID
     Route: 048
  3. RANITIDINE. [Concomitant]
     Active Substance: RANITIDINE
     Dosage: 100 MG, BID
     Route: 048
  4. PREVACID [Concomitant]
     Active Substance: LANSOPRAZOLE
     Dosage: 15 MG, BID
  5. VIMPAT [Concomitant]
     Active Substance: LACOSAMIDE
     Dosage: 75 MG, BID
  6. REMODULIN [Suspect]
     Active Substance: TREPROSTINIL
     Indication: PULMONARY HYPERTENSION
     Dosage: 50 NG/KG, PER MIN
     Route: 058
  7. PREDNISOLONE. [Concomitant]
     Active Substance: PREDNISOLONE
     Dosage: 30 MG AM AND 15 MG PM
  8. ASPIRIN. [Concomitant]
     Active Substance: ASPIRIN
     Dosage: 40.5 MG, QD
     Route: 048
  9. ADCIRCA [Concomitant]
     Active Substance: TADALAFIL
     Dosage: 37.5 MG, QD
  10. LACOSAMIDE. [Concomitant]
     Active Substance: LACOSAMIDE
     Dosage: 75 MG, BID
     Route: 048
  11. LACOSAMIDE. [Concomitant]
     Active Substance: LACOSAMIDE
     Dosage: 31.25 MG, BID
     Route: 048
  12. ZANTAC [Concomitant]
     Active Substance: RANITIDINE HYDROCHLORIDE
     Dosage: 100.5 MG, BID
  13. TRACLEER [Suspect]
     Active Substance: BOSENTAN
     Indication: PULMONARY HYPERTENSION
     Dosage: 31.25 MG, BID
     Route: 048
     Dates: start: 20160825
  14. REMODULIN [Suspect]
     Active Substance: TREPROSTINIL
     Dosage: 80 NG/KG, PER MIN
     Route: 058
     Dates: start: 20160825
  15. IRON [Concomitant]
     Active Substance: IRON
  16. IBUPROFEN. [Concomitant]
     Active Substance: IBUPROFEN
     Dosage: 250 MG, TID
  17. TRAMADOL. [Concomitant]
     Active Substance: TRAMADOL
     Dosage: 25 MG, PRN
  18. ALBUTEROL. [Concomitant]
     Active Substance: ALBUTEROL
  19. ZANTAC [Concomitant]
     Active Substance: RANITIDINE HYDROCHLORIDE
     Dosage: 75 MG, BID
     Route: 048

REACTIONS (30)
  - Clostridium difficile infection [Recovered/Resolved]
  - White blood cell count increased [Unknown]
  - Catheter site rash [Unknown]
  - Diarrhoea [Unknown]
  - Cough [Recovering/Resolving]
  - Pain in extremity [Recovering/Resolving]
  - Arthralgia [Recovering/Resolving]
  - Cardiac failure [Unknown]
  - Concomitant disease aggravated [Fatal]
  - Haematochezia [Recovered/Resolved]
  - Abdominal distension [Recovering/Resolving]
  - Rhinovirus infection [Recovering/Resolving]
  - Aspartate aminotransferase increased [Recovering/Resolving]
  - Catheter site erythema [Unknown]
  - Gastrointestinal infection [Unknown]
  - Enterovirus infection [Recovering/Resolving]
  - Back pain [Recovering/Resolving]
  - Nausea [Unknown]
  - Histiocytosis haematophagic [Fatal]
  - Transaminases increased [Recovering/Resolving]
  - Joint swelling [Recovering/Resolving]
  - Alanine aminotransferase increased [Recovering/Resolving]
  - Vomiting [Unknown]
  - Blood bilirubin increased [Recovered/Resolved]
  - Catheter site swelling [Unknown]
  - Pyrexia [Unknown]
  - Juvenile idiopathic arthritis [Recovering/Resolving]
  - Hepatic enzyme increased [Recovering/Resolving]
  - Blood alkaline phosphatase increased [Recovering/Resolving]
  - Infection [Unknown]

NARRATIVE: CASE EVENT DATE: 20161117
